FAERS Safety Report 23131630 (Version 1)
Quarter: 2023Q4

REPORT INFORMATION
  Report Type: Spontaneous
  Country: RO (occurrence: None)
  Receive Date: 20231031
  Receipt Date: 20231031
  Transmission Date: 20240110
  Serious: Yes (Other)
  Sender: FDA-Public Use
  Company Number: 2023A245780

PATIENT
  Age: 49 Year
  Sex: Female

DRUGS (5)
  1. IMFINZI [Suspect]
     Active Substance: DURVALUMAB
     Indication: Non-small cell lung cancer stage IIIB
     Route: 042
     Dates: start: 20210111, end: 20220309
  2. IMFINZI [Suspect]
     Active Substance: DURVALUMAB
     Indication: Non-small cell lung cancer stage IIIB
     Route: 042
     Dates: start: 20210723
  3. DOCETAXEL [Concomitant]
     Active Substance: DOCETAXEL
     Dosage: 90 MG/M2 Q3W
  4. CISPLATIN [Concomitant]
     Active Substance: CISPLATIN
     Dosage: 75 MG/M2 DAY1 EVERY 21 DAYS
     Dates: start: 20220727
  5. GEMCITABINE [Concomitant]
     Active Substance: GEMCITABINE
     Dosage: 1000 MG/M2 Q2W
     Dates: start: 20220727

REACTIONS (2)
  - Metastases to central nervous system [Unknown]
  - Malignant neoplasm progression [Recovered/Resolved]

NARRATIVE: CASE EVENT DATE: 20211207
